FAERS Safety Report 5031477-9 (Version None)
Quarter: 2006Q2

REPORT INFORMATION
  Report Type: 
  Country: None (occurrence: None)
  Receive Date: 20060616
  Receipt Date: 20060601
  Transmission Date: 20061013
  Serious: No
  Sender: FDA-Public Use
  Company Number: 2006US001143

PATIENT
  Age: 65 Year
  Sex: Female
  Weight: 54.9 kg

DRUGS (3)
  1. AMEVIVE [Suspect]
     Indication: PSORIASIS
     Dosage: 15 MG WEEKLY INTRAMUSCULAR
     Route: 030
     Dates: start: 20031210, end: 20040211
  2. PRAVACHOL [Concomitant]
  3. PREMPRO [Concomitant]

REACTIONS (6)
  - DRUG ERUPTION [None]
  - ERYTHEMA MULTIFORME [None]
  - FEAR [None]
  - RASH PRURITIC [None]
  - SKIN BURNING SENSATION [None]
  - SKIN DISCOLOURATION [None]
